FAERS Safety Report 24450563 (Version 1)
Quarter: 2024Q4

REPORT INFORMATION
  Report Type: Spontaneous
  Country: US (occurrence: None)
  Receive Date: 20241016
  Receipt Date: 20241016
  Transmission Date: 20250115
  Serious: Yes (Life-Threatening, Hospitalization, Disabling)
  Sender: Public
  Company Number: None

PATIENT
  Age: 32 Year
  Sex: Female
  Weight: 63 kg

DRUGS (16)
  1. SIMPONI [Suspect]
     Active Substance: GOLIMUMAB
     Indication: Multiple sclerosis
     Dosage: OTHER QUANTITY : 1 INJECTION(S);?OTHER FREQUENCY : ONCE A MONTH;?
     Route: 058
     Dates: start: 20220801, end: 20240121
  2. ADDERALL [Concomitant]
     Active Substance: AMPHETAMINE ASPARTATE\AMPHETAMINE SULFATE\DEXTROAMPHETAMINE SACCHARATE\DEXTROAMPHETAMINE SULFATE
  3. KETAMINE [Concomitant]
     Active Substance: KETAMINE
  4. TRAZODONE [Concomitant]
     Active Substance: TRAZODONE HYDROCHLORIDE
  5. BELSOMRA [Concomitant]
     Active Substance: SUVOREXANT
  6. LITHIUM [Concomitant]
     Active Substance: LITHIUM
  7. OLANZAPINE [Concomitant]
     Active Substance: OLANZAPINE
  8. VUMERITY [Concomitant]
     Active Substance: DIROXIMEL FUMARATE
  9. BACLOFEN [Concomitant]
     Active Substance: BACLOFEN
  10. PRAZOSIN [Concomitant]
     Active Substance: PRAZOSIN\PRAZOSIN HYDROCHLORIDE
  11. ALBUTEROL [Concomitant]
     Active Substance: ALBUTEROL
  12. PULMICORT TURBUHALER [Concomitant]
     Active Substance: BUDESONIDE
  13. INCASSIA [Concomitant]
     Active Substance: NORETHINDRONE
  14. adjovy [Concomitant]
  15. premfina [Concomitant]
  16. ASPIRIN [Concomitant]
     Active Substance: ASPIRIN

REACTIONS (3)
  - Seizure [None]
  - Multiple sclerosis [None]
  - Demyelination [None]

NARRATIVE: CASE EVENT DATE: 20240120
